FAERS Safety Report 9052836 (Version 1)
Quarter: 2013Q1

REPORT INFORMATION
  Report Type: Spontaneous
  Country: AT (occurrence: AT)
  Receive Date: 20130207
  Receipt Date: 20130207
  Transmission Date: 20140127
  Serious: Yes (Hospitalization)
  Sender: FDA-Public Use
  Company Number: AT-AMGEN-AUTSP2013003157

PATIENT
  Age: 31 Year
  Sex: Female
  Weight: 66.8 kg

DRUGS (8)
  1. PEGFILGRASTIM [Suspect]
     Indication: BREAST CANCER
     Dosage: UNK
  2. PERTUZUMAB [Concomitant]
     Indication: BREAST CANCER
     Dosage: UNK UNK, Q3WK
     Route: 042
     Dates: start: 20121122
  3. TRASTUZUMAB [Concomitant]
     Indication: BREAST CANCER
     Dosage: LOADING DOSE CYCLE 1, 8 MG/KG, UNK
     Route: 042
  4. TRASTUZUMAB [Concomitant]
     Dosage: 6 MG/KG, Q3WK
     Route: 042
     Dates: start: 20121122
  5. CARBOPLATIN [Concomitant]
     Indication: BREAST CANCER
     Dosage: 820 MG, Q3WK
     Route: 042
     Dates: start: 20121122
  6. PACLITAXEL [Concomitant]
     Indication: BREAST CANCER
     Dosage: 132.25 MG, Q3WK
     Route: 042
  7. DOCETAXEL [Concomitant]
     Indication: BREAST CANCER
     Dosage: 132.75 MG, Q3WK
     Route: 042
     Dates: start: 20121122
  8. NOLIPREL                           /01421201/ [Concomitant]
     Dosage: UNK

REACTIONS (2)
  - Infection [Recovered/Resolved]
  - Syncope [Recovered/Resolved]
